FAERS Safety Report 10314183 (Version 1)
Quarter: 2014Q3

REPORT INFORMATION
  Report Type: Spontaneous
  Country: IT (occurrence: IT)
  Receive Date: 20140718
  Receipt Date: 20140718
  Transmission Date: 20150326
  Serious: Yes (Hospitalization)
  Sender: FDA-Public Use
  Company Number: IT-BRISTOL-MYERS SQUIBB COMPANY-21192000

PATIENT
  Age: 81 Year
  Sex: Female

DRUGS (15)
  1. IVABRADINE [Concomitant]
     Active Substance: IVABRADINE
  2. PLAVIX [Concomitant]
     Active Substance: CLOPIDOGREL BISULFATE
  3. ZYLORIC [Concomitant]
     Active Substance: ALLOPURINOL
  4. LYRICA [Concomitant]
     Active Substance: PREGABALIN
  5. METFORMIN HCL [Suspect]
     Active Substance: METFORMIN HYDROCHLORIDE
     Indication: DIABETES MELLITUS
     Route: 048
     Dates: start: 20090314, end: 20140314
  6. LANTUS [Suspect]
     Active Substance: INSULIN GLARGINE
     Indication: DIABETES MELLITUS
     Dosage: 1DF-30 DF UNITS NOS
     Route: 058
     Dates: start: 20110314, end: 20140314
  7. MINITRAN [Concomitant]
     Active Substance: NITROGLYCERIN
  8. PANTORC [Concomitant]
     Active Substance: PANTOPRAZOLE SODIUM
  9. ESIDREX [Concomitant]
     Active Substance: HYDROCHLOROTHIAZIDE
  10. ATORVASTATIN [Concomitant]
     Active Substance: ATORVASTATIN
  11. LASIX [Concomitant]
     Active Substance: FUROSEMIDE
  12. GLICLAZIDE [Suspect]
     Active Substance: GLICLAZIDE
     Indication: DIABETES MELLITUS
     Route: 048
     Dates: start: 20090314, end: 20140314
  13. EUTIROX [Concomitant]
     Active Substance: LEVOTHYROXINE SODIUM
  14. FLUCONAZOLE. [Concomitant]
     Active Substance: FLUCONAZOLE
  15. APROVEL [Concomitant]
     Active Substance: IRBESARTAN

REACTIONS (2)
  - Hypoglycaemia [Recovered/Resolved]
  - Syncope [Recovered/Resolved]

NARRATIVE: CASE EVENT DATE: 20140314
